FAERS Safety Report 25272802 (Version 3)
Quarter: 2025Q4

REPORT INFORMATION
  Report Type: Report from Study
  Country: CA (occurrence: CA)
  Receive Date: 20250506
  Receipt Date: 20251106
  Transmission Date: 20260118
  Serious: Yes (Other)
  Sender: JOHNSON AND JOHNSON
  Company Number: CA-JNJFOC-20240323873

PATIENT
  Age: 58 Year
  Sex: Female
  Weight: 87.5 kg

DRUGS (2)
  1. REMICADE [Suspect]
     Active Substance: INFLIXIMAB
     Indication: Crohn^s disease
     Route: 041
  2. REMICADE [Suspect]
     Active Substance: INFLIXIMAB
     Route: 041

REACTIONS (4)
  - Clostridium difficile infection [Not Recovered/Not Resolved]
  - Breast cyst [Recovered/Resolved]
  - Postoperative wound infection [Recovered/Resolved]
  - Mastitis [Unknown]

NARRATIVE: CASE EVENT DATE: 20250220
